FAERS Safety Report 19431745 (Version 1)
Quarter: 2021Q2

REPORT INFORMATION
  Report Type: Spontaneous
  Country: US (occurrence: US)
  Receive Date: 20210617
  Receipt Date: 20210617
  Transmission Date: 20210717
  Serious: No
  Sender: FDA-Public Use
  Company Number: US-ENDO PHARMACEUTICALS INC-2020-004423

PATIENT
  Sex: Female

DRUGS (2)
  1. SUPPRELIN LA [Suspect]
     Active Substance: HISTRELIN ACETATE
     Indication: HYPOTHALAMO-PITUITARY DISORDER
     Dosage: 50 MG, UNKNOWN
     Route: 065
     Dates: start: 20200526
  2. SUPPRELIN LA [Suspect]
     Active Substance: HISTRELIN ACETATE
     Indication: HYPOTHALAMO-PITUITARY DISORDER
     Dosage: 50 MG, UNKNOWN
     Route: 065
     Dates: start: 20200526

REACTIONS (3)
  - Vaginal haemorrhage [Unknown]
  - Anger [Unknown]
  - Premature menarche [Unknown]

NARRATIVE: CASE EVENT DATE: 2020
